FAERS Safety Report 15059059 (Version 2)
Quarter: 2018Q4

REPORT INFORMATION
  Report Type: Spontaneous
  Country: FR (occurrence: FR)
  Receive Date: 20180625
  Receipt Date: 20181107
  Transmission Date: 20190204
  Serious: Yes (Life-Threatening, Hospitalization, Other)
  Sender: FDA-Public Use
  Company Number: FR-MYLANLABS-2018M1043726

PATIENT
  Age: 66 Year
  Sex: Male
  Weight: 59 kg

DRUGS (15)
  1. DOLIPRANE [Concomitant]
     Active Substance: ACETAMINOPHEN
     Indication: PRODUCT USED FOR UNKNOWN INDICATION
     Dosage: UNK
     Route: 065
  2. ZOPICLONE [Suspect]
     Active Substance: ZOPICLONE
     Indication: PRODUCT USED FOR UNKNOWN INDICATION
     Dosage: 225 MG, UNK
     Route: 048
     Dates: start: 20180515, end: 20180515
  3. VALSARTAN. [Suspect]
     Active Substance: VALSARTAN
     Dosage: 3200 MG, UNK
     Route: 048
  4. BISOCE 5 MG, COMPRIM? PELLICUL? S?CABLE [Suspect]
     Active Substance: BISOPROLOL
     Dosage: 200 MG, UNK
     Route: 048
  5. ZOPICLONE [Suspect]
     Active Substance: ZOPICLONE
     Dosage: 225 MG, UNK
     Route: 048
  6. ASPEGIC                            /00002701/ [Concomitant]
     Active Substance: ASPIRIN
     Indication: PRODUCT USED FOR UNKNOWN INDICATION
     Dosage: UNK
  7. VALSARTAN. [Suspect]
     Active Substance: VALSARTAN
     Indication: PRODUCT USED FOR UNKNOWN INDICATION
     Dosage: 3200 MG, UNK
     Route: 048
     Dates: start: 20180515, end: 20180515
  8. BROMAZEPAM [Concomitant]
     Active Substance: BROMAZEPAM
     Indication: PRODUCT USED FOR UNKNOWN INDICATION
     Dosage: UNK
  9. ALPRAZOLAM. [Concomitant]
     Active Substance: ALPRAZOLAM
     Indication: PRODUCT USED FOR UNKNOWN INDICATION
     Dosage: UNK
  10. ATORVASTATIN [Suspect]
     Active Substance: ATORVASTATIN
     Indication: PRODUCT USED FOR UNKNOWN INDICATION
     Dosage: 1600 MG, UNK
     Route: 048
     Dates: start: 20180515, end: 20180515
  11. ATORVASTATIN [Suspect]
     Active Substance: ATORVASTATIN
     Dosage: 1600 MG, UNK
     Route: 048
  12. CALCIDOSE VITAMINE D [Concomitant]
     Active Substance: CALCIUM\CHOLECALCIFEROL
     Indication: PRODUCT USED FOR UNKNOWN INDICATION
     Dosage: UNK
     Route: 048
  13. BISOCE 5 MG, COMPRIM? PELLICUL? S?CABLE [Suspect]
     Active Substance: BISOPROLOL
     Indication: PRODUCT USED FOR UNKNOWN INDICATION
     Dosage: 200 MG, UNK
     Route: 048
     Dates: start: 20180515, end: 20180515
  14. PAROXETINE. [Suspect]
     Active Substance: PAROXETINE
     Indication: PRODUCT USED FOR UNKNOWN INDICATION
     Dosage: 300 MG, UNK
     Route: 048
     Dates: start: 20180515, end: 20180515
  15. PAROXETINE. [Suspect]
     Active Substance: PAROXETINE
     Dosage: 300 MG, UNK
     Route: 048

REACTIONS (4)
  - Bradycardia [Recovered/Resolved]
  - Overdose [Unknown]
  - Suicide attempt [Unknown]
  - Somnolence [Recovered/Resolved]

NARRATIVE: CASE EVENT DATE: 20180515
